FAERS Safety Report 18626789 (Version 1)
Quarter: 2020Q4

REPORT INFORMATION
  Report Type: Spontaneous
  Country: US (occurrence: US)
  Receive Date: 20201215
  Receipt Date: 20201215
  Transmission Date: 20210114
  Serious: Yes (Hospitalization)
  Sender: FDA-Public Use
  Company Number: None

PATIENT
  Sex: Female

DRUGS (25)
  1. NASONEX SPR [Concomitant]
  2. OXYCODONE [Concomitant]
     Active Substance: OXYCODONE
  3. QVAR [Concomitant]
     Active Substance: BECLOMETHASONE DIPROPIONATE
  4. ESTAZOLAM. [Concomitant]
     Active Substance: ESTAZOLAM
  5. VIT D [Concomitant]
     Active Substance: VITAMIN D NOS
  6. COSENTYX [Suspect]
     Active Substance: SECUKINUMAB
     Indication: PSORIATIC ARTHROPATHY
     Dosage: ?          OTHER FREQUENCY:Q28DAYS;?
     Route: 058
     Dates: start: 20201121
  7. METOPROL TAR [Concomitant]
  8. TESTOSTERONE POW [Concomitant]
  9. LEVOTHYROXIN [Concomitant]
     Active Substance: LEVOTHYROXINE
  10. DOVONEX MONO [Concomitant]
  11. ENBREL [Concomitant]
     Active Substance: ETANERCEPT
  12. FUROSEMIDE. [Concomitant]
     Active Substance: FUROSEMIDE
  13. PROVENTIL HFA [Concomitant]
     Active Substance: ALBUTEROL SULFATE
  14. CLOBETASOL AER [Concomitant]
  15. CROMOLYN SOD SOL [Concomitant]
  16. DOXYCYC MONO [Concomitant]
     Active Substance: DOXYCYCLINE
  17. INDAPAMIDE. [Concomitant]
     Active Substance: INDAPAMIDE
  18. KLOR-CON M10 [Concomitant]
     Active Substance: POTASSIUM CHLORIDE
  19. POT CHLORIDE SOL [Concomitant]
  20. WELLBUTRIN [Concomitant]
     Active Substance: BUPROPION HYDROCHLORIDE
  21. HYDROCO/APAP [Concomitant]
     Active Substance: ACETAMINOPHEN\HYDROCODONE
  22. NYSTATIN SUS [Concomitant]
     Active Substance: NYSTATIN
  23. PREDNISONE. [Concomitant]
     Active Substance: PREDNISONE
  24. SYNTHROID [Concomitant]
     Active Substance: LEVOTHYROXINE SODIUM
  25. TRIMPRAMINE [Concomitant]

REACTIONS (2)
  - Rubber sensitivity [None]
  - Emergency care [None]
